FAERS Safety Report 22243193 (Version 1)
Quarter: 2023Q2

REPORT INFORMATION
  Report Type: Spontaneous
  Country: DE (occurrence: DE)
  Receive Date: 20230424
  Receipt Date: 20230424
  Transmission Date: 20230722
  Serious: Yes (Death)
  Sender: FDA-Public Use
  Company Number: DE-SHIONOGI, INC-2023000829

PATIENT
  Age: 48 Year
  Sex: Female
  Weight: 95 kg

DRUGS (3)
  1. FETROJA [Suspect]
     Active Substance: CEFIDEROCOL SULFATE TOSYLATE
     Indication: Klebsiella infection
     Dosage: 2 G, QID, OVER 24 HOURS, EACH INFUSION TIME WAS 6 HOURS
     Route: 042
  2. FETROJA [Suspect]
     Active Substance: CEFIDEROCOL SULFATE TOSYLATE
     Indication: Bacterial infection
     Dosage: 2 G, 3 HOURS
     Route: 042
  3. FETROJA [Suspect]
     Active Substance: CEFIDEROCOL SULFATE TOSYLATE
     Indication: Drug resistance
     Dosage: 6 G, QUASI-CONTINUOUSLY OVER A PERIOD OF 24 HOUR (3 ? 2 G OVER 8 HOUR EACH)
     Route: 042

REACTIONS (4)
  - Infection [Fatal]
  - Multiple organ dysfunction syndrome [Fatal]
  - Incorrect product administration duration [Unknown]
  - Off label use [Unknown]
